FAERS Safety Report 16772618 (Version 2)
Quarter: 2020Q1

REPORT INFORMATION
  Report Type: Other
  Country: GB (occurrence: GB)
  Receive Date: 20190904
  Receipt Date: 20200207
  Transmission Date: 20200409
  Serious: Yes (Other)
  Sender: FDA-Public Use
  Company Number: GB-DENTSPLY-2019SCDP000466

PATIENT
  Age: 9 Year
  Sex: Female

DRUGS (1)
  1. PRILOCAINE AND LIDOCAINE [Suspect]
     Active Substance: LIDOCAINE\PRILOCAINE
     Indication: PRODUCT USED FOR UNKNOWN INDICATION
     Dosage: APPLY THICK LAYER AND COVER WITH DRESSING
     Route: 061
     Dates: start: 20190730, end: 20190730

REACTIONS (6)
  - Cyanosis [Recovered/Resolved]
  - Loss of consciousness [Recovered/Resolved]
  - Respiratory rate decreased [Recovered/Resolved]
  - Hypopnoea [Recovered/Resolved]
  - Circulatory collapse [Recovered/Resolved]
  - Blindness transient [Recovered/Resolved]

NARRATIVE: CASE EVENT DATE: 20190730
